FAERS Safety Report 9413642 (Version 1)
Quarter: 2013Q2

REPORT INFORMATION
  Report Type: Spontaneous
  Country: US (occurrence: None)
  Receive Date: 20130513
  Receipt Date: 20130513
  Transmission Date: 20140414
  Serious: Yes (Hospitalization, Other)
  Sender: FDA-Public Use
  Company Number: 2012030789

PATIENT
  Age: 62 Year
  Sex: Female
  Weight: 86.64 kg

DRUGS (17)
  1. HIZENTRA (IMMUNOGLOBULIN HUMAN NORMAL) [Suspect]
     Indication: BLOOD IMMUNOGLOBULIN G DECREASED
     Dates: start: 201009
  2. VENLAFAXINE (VENLAFAXINE) [Concomitant]
  3. POTASSIUM (POSTASSIUM) [Concomitant]
  4. METFORMIN (METFORMIN) [Concomitant]
  5. GLYBURIDE (GLIBENCLAMIDE) [Concomitant]
  6. METOPROLOL (METOPROLOL) [Concomitant]
  7. FOLIC ACID (FOLIC ACID) [Concomitant]
  8. NORTRIPTYLINE (NORTRIPTYLINE) [Concomitant]
  9. ATORVASTATIN CALCIUM (ATORVASTATIN CALCIUM) [Concomitant]
  10. ADVAIR (SERETIDE/01420901/) [Concomitant]
  11. SPIRIVA (TIOTROPIUM BROMIDE) [Concomitant]
  12. IMITREX (SUMARTRIPTAN) [Concomitant]
  13. FUROSEMIDE (FUROSEMIDE) [Concomitant]
  14. OXYGEN (OXYGEN) [Concomitant]
  15. PREDNISONE (PREDNISONE) [Concomitant]
  16. LEXAPRIL (ESCITALOPRAM) [Concomitant]
  17. PREVACID (LANSOPRAZOLE) [Concomitant]

REACTIONS (5)
  - Meningitis [None]
  - Dry mouth [None]
  - Migraine [None]
  - Mania [None]
  - Toothache [None]
